FAERS Safety Report 9133118 (Version 2)
Quarter: 2013Q2

REPORT INFORMATION
  Report Type: Spontaneous
  Country: AU (occurrence: AU)
  Receive Date: 20130301
  Receipt Date: 20130409
  Transmission Date: 20140414
  Serious: Yes (Death, Hospitalization, Other)
  Sender: FDA-Public Use
  Company Number: AU-B.I. PHARMACEUTICALS,INC./RIDGEFIELD-2013-AU-00205AU

PATIENT
  Age: 91 Year
  Sex: Female
  Weight: 50 kg

DRUGS (6)
  1. PRADAXA [Suspect]
     Indication: ATRIAL FIBRILLATION
     Dosage: 220 MG
  2. PRADAXA [Suspect]
  3. ATACAND [Concomitant]
     Indication: HYPERTENSION
     Dosage: 16 MG
     Dates: end: 20130216
  4. OROXINE [Concomitant]
     Indication: HYPOTHYROIDISM
     Dosage: 50 MCG
     Dates: end: 20130216
  5. METOPROLOL [Concomitant]
     Indication: ATRIAL FIBRILLATION
     Dosage: 100 MG
  6. PANADOL OSTEO [Concomitant]
     Indication: OSTEOARTHRITIS

REACTIONS (2)
  - Myocardial infarction [Fatal]
  - Sepsis [Unknown]
